FAERS Safety Report 9896277 (Version 2)
Quarter: 2014Q1

REPORT INFORMATION
  Report Type: Spontaneous
  Country: US (occurrence: US)
  Receive Date: 20140213
  Receipt Date: 20140213
  Transmission Date: 20141002
  Serious: No
  Sender: FDA-Public Use
  Company Number: US-BRISTOL-MYERS SQUIBB COMPANY-18817676

PATIENT
  Age: 66 Year
  Sex: Female
  Weight: 52.15 kg

DRUGS (2)
  1. ORENCIA FOR INJ [Suspect]
     Indication: RHEUMATOID ARTHRITIS
     Dosage: LAST INF-1MAY2013.SCH DT:15MAY2013,JUNE2013,17APR2013;FREQUENCY OF DOSE: 0,2,2,4 WK INF:2.
     Route: 042
     Dates: start: 201304
  2. TENORMIN [Concomitant]
     Indication: HYPERTENSION

REACTIONS (7)
  - Pain in extremity [Unknown]
  - Local swelling [Unknown]
  - Skin discolouration [Unknown]
  - Musculoskeletal pain [Unknown]
  - Poor venous access [Unknown]
  - Malaise [Unknown]
  - Blood pressure increased [Recovering/Resolving]
